FAERS Safety Report 24433959 (Version 4)
Quarter: 2024Q4

REPORT INFORMATION
  Report Type: Spontaneous
  Country: BE (occurrence: BE)
  Receive Date: 20241014
  Receipt Date: 20241127
  Transmission Date: 20250115
  Serious: Yes (Hospitalization, Other)
  Sender: MERCK
  Company Number: BE-ROCHE-3534562

PATIENT
  Age: 47 Year
  Sex: Male
  Weight: 89.2 kg

DRUGS (42)
  1. PEMBROLIZUMAB [Suspect]
     Active Substance: PEMBROLIZUMAB
     Indication: Non-small cell lung cancer metastatic
     Dosage: 200 MILLIGRAM, Q3W; ON 23/APR/2024, HE RECEIVED MOST RECENT DOSE OF PEMBROLIZUMAB (200 MG) PRIOR TO
     Route: 042
     Dates: start: 20240313
  2. DIVARASIB [Suspect]
     Active Substance: DIVARASIB
     Indication: Non-small cell lung cancer metastatic
     Dosage: 200 MG, QD; ON 15-APR-2024, HE RECEIVED THE MOST RECENT DOSE OF GDC-6036 (100 MG) PRIOR TO AE AND 15
     Route: 048
     Dates: start: 20240313
  3. CARBOPLATIN [Suspect]
     Active Substance: CARBOPLATIN
     Indication: Non-small cell lung cancer metastatic
     Dosage: 625 MILLIGRAM, Q3W; ON 23/APR/2024, HE RECEIVED MOST RECENT DOSE OF CARBOPLATIN (685 MG) PRIOR TO AE
     Route: 042
     Dates: start: 20240313
  4. PEMETREXED [Suspect]
     Active Substance: PEMETREXED
     Indication: Non-small cell lung cancer metastatic
     Dosage: 1000 MILLIGRAM, Q3W, INFUSION; ON 23/APR/2024, HE RECEIVED MOST RECENT DOSE OF PEMETREXED (1000 MG)
     Route: 042
     Dates: start: 20240313
  5. NADROPARIN CALCIUM [Concomitant]
     Active Substance: NADROPARIN CALCIUM
     Dosage: 3800 INTERNATIONAL UNIT, QD
     Route: 058
     Dates: start: 20240513, end: 20240519
  6. FOLIC ACID [Concomitant]
     Active Substance: FOLIC ACID
     Dosage: 0.4 MILLIGRAM, QD
     Route: 048
     Dates: start: 20240229
  7. PEGFILGRASTIM [Concomitant]
     Active Substance: PEGFILGRASTIM
     Dosage: 6 MILLIGRAM, Q3W
     Route: 058
     Dates: start: 20240314, end: 20240424
  8. BLEPHACLEAN [Concomitant]
     Indication: Blepharitis
     Dosage: UNK, QD; 1 OTHER
     Route: 047
     Dates: start: 20240517, end: 20240519
  9. BLEPHACLEAN [Concomitant]
     Dosage: 8 MILLIGRAM, EVERY 4 DAYS; INJECTION
     Route: 058
     Dates: start: 20240513, end: 20240520
  10. INDOMETHACIN [Concomitant]
     Active Substance: INDOMETHACIN
     Indication: Lacrimation increased
     Dosage: 1 OTHER
     Route: 047
     Dates: start: 20240423, end: 20240521
  11. ALIZAPRIDE HYDROCHLORIDE [Concomitant]
     Active Substance: ALIZAPRIDE HYDROCHLORIDE
     Indication: Nausea
     Dosage: 50 MILLIGRAM, AS NECESSARY
     Route: 048
     Dates: start: 20240315, end: 20240401
  12. ALIZAPRIDE HYDROCHLORIDE [Concomitant]
     Active Substance: ALIZAPRIDE HYDROCHLORIDE
     Dosage: 50 MILLIGRAM, AS NECESSARY
     Route: 048
     Dates: start: 20240906
  13. AKYNZEO (NETUPITANT\PALONOSETRON HYDROCHLORIDE) [Concomitant]
     Active Substance: NETUPITANT\PALONOSETRON HYDROCHLORIDE
     Dosage: 300 MILLIGRAM, QD, CAPSULE
     Route: 048
     Dates: start: 20240403, end: 20240403
  14. AKYNZEO (NETUPITANT\PALONOSETRON HYDROCHLORIDE) [Concomitant]
     Active Substance: NETUPITANT\PALONOSETRON HYDROCHLORIDE
     Dosage: 1 TABLET; FORM: TABLET
     Route: 048
     Dates: start: 20240423, end: 20240423
  15. AKYNZEO (NETUPITANT\PALONOSETRON HYDROCHLORIDE) [Concomitant]
     Active Substance: NETUPITANT\PALONOSETRON HYDROCHLORIDE
     Dosage: 300 MILLIGRAM, QD, TABLET
     Route: 048
     Dates: start: 20240313, end: 20240313
  16. MEDROL [Concomitant]
     Active Substance: METHYLPREDNISOLONE
     Indication: Urticaria
     Dosage: 16 MILLIGRAM, BID
     Route: 048
     Dates: start: 20240513, end: 20240513
  17. MEDROL [Concomitant]
     Active Substance: METHYLPREDNISOLONE
     Dosage: 16 MILLIGRAM, BID
     Route: 048
     Dates: start: 20240314, end: 20240316
  18. MEDROL [Concomitant]
     Active Substance: METHYLPREDNISOLONE
     Dosage: 16 MILLIGRAM, BID
     Route: 048
     Dates: start: 20240423, end: 20240427
  19. MEDROL [Concomitant]
     Active Substance: METHYLPREDNISOLONE
     Dosage: 16 MILLIGRAM, BID
     Route: 048
     Dates: start: 20241002, end: 20241003
  20. MEDROL [Concomitant]
     Active Substance: METHYLPREDNISOLONE
     Dosage: 2 MILLIGRAM, QD
     Route: 048
     Dates: start: 20240918
  21. MEDROL [Concomitant]
     Active Substance: METHYLPREDNISOLONE
     Dosage: 2 MILLIGRAM, QD
     Route: 048
     Dates: start: 20241004, end: 20241008
  22. MEDROL [Concomitant]
     Active Substance: METHYLPREDNISOLONE
     Dosage: 32 MILLIGRAM, QD
     Route: 048
     Dates: start: 20241001, end: 20241001
  23. TRAMADOL HYDROCHLORIDE [Concomitant]
     Active Substance: TRAMADOL HYDROCHLORIDE
     Indication: Musculoskeletal chest pain
     Dosage: 100 MILLIGRAM, BID, TABLET
     Route: 048
     Dates: start: 20240906
  24. CALCIUM CARBONATE\CHOLECALCIFEROL [Concomitant]
     Active Substance: CALCIUM CARBONATE\CHOLECALCIFEROL
     Dosage: 1 TABLET, QD
     Route: 048
     Dates: start: 20240328, end: 20240827
  25. SOLU-MEDROL [Concomitant]
     Active Substance: METHYLPREDNISOLONE SODIUM SUCCINATE
     Indication: Urticaria
     Dosage: 40 MILLIGRAM, QD, SOLUTION
     Route: 042
     Dates: start: 20240313, end: 20240313
  26. SOLU-MEDROL [Concomitant]
     Active Substance: METHYLPREDNISOLONE SODIUM SUCCINATE
     Dosage: 40 MILLIGRAM, QD, SOLUTION
     Route: 042
     Dates: start: 20240403, end: 20240403
  27. SOLU-MEDROL [Concomitant]
     Active Substance: METHYLPREDNISOLONE SODIUM SUCCINATE
     Dosage: 40 MILLIGRAM, QD, SOLUTION
     Route: 042
     Dates: start: 20240423, end: 20240423
  28. SOLU-MEDROL [Concomitant]
     Active Substance: METHYLPREDNISOLONE SODIUM SUCCINATE
     Dosage: 125 MILLIGRAM, QD
     Route: 042
     Dates: start: 20240930, end: 20240930
  29. MOVICOL [Concomitant]
     Active Substance: POLYETHYLENE GLYCOL 3350\POTASSIUM CHLORIDE\SODIUM BICARBONATE\SODIUM CHLORIDE
     Indication: Constipation
     Dosage: UNK, PRN
     Route: 048
     Dates: start: 20240315
  30. PANTOPRAZOLE SODIUM [Concomitant]
     Active Substance: PANTOPRAZOLE SODIUM
     Dosage: 40 MILLIGRAM, QD
     Route: 048
     Dates: start: 20240328
  31. BACTRIM [Concomitant]
     Active Substance: SULFAMETHOXAZOLE\TRIMETHOPRIM
     Dosage: 1 OTHER
     Route: 048
     Dates: start: 20240328, end: 20240404
  32. AKYNZEO [FOSNETUPITANT CHLORIDE HYDROCHLORIDE;PALONOSETRON HYDROCHLORI [Concomitant]
     Dosage: 1 DOSAGE FORM, QD
     Route: 048
     Dates: start: 20240313, end: 20240313
  33. AKYNZEO [FOSNETUPITANT CHLORIDE HYDROCHLORIDE;PALONOSETRON HYDROCHLORI [Concomitant]
     Dosage: 1 DOSAGE FORM, QD
     Route: 048
     Dates: start: 20240403, end: 20240403
  34. AKYNZEO [FOSNETUPITANT CHLORIDE HYDROCHLORIDE;PALONOSETRON HYDROCHLORI [Concomitant]
     Dosage: 1 DOSAGE FORM, QD
     Route: 048
     Dates: start: 20240423, end: 20240423
  35. DEXTROSE\SODIUM CHLORIDE [Concomitant]
     Active Substance: DEXTROSE\SODIUM CHLORIDE
     Dosage: 1 OTHER
     Route: 042
     Dates: start: 20240423, end: 20240423
  36. DEXAMETHASONE [Concomitant]
     Active Substance: DEXAMETHASONE
     Dosage: 4 MILLIGRAM, BID
     Route: 048
     Dates: start: 20240805, end: 20240809
  37. DEXAMETHASONE [Concomitant]
     Active Substance: DEXAMETHASONE
     Dosage: 4 MILLIGRAM, BID
     Route: 048
     Dates: start: 20240826, end: 20240830
  38. DEXAMETHASONE [Concomitant]
     Active Substance: DEXAMETHASONE
     Dosage: 4 MILLIGRAM, BID
     Route: 048
     Dates: start: 20240916, end: 20240920
  39. DEXAMETHASONE [Concomitant]
     Active Substance: DEXAMETHASONE
     Dosage: 4 MILLIGRAM, BID
     Route: 048
     Dates: start: 20240715, end: 20240720
  40. DEXAMETHASONE [Concomitant]
     Active Substance: DEXAMETHASONE
     Dosage: 4 MILLIGRAM, BID
     Route: 048
     Dates: start: 20241007, end: 20241007
  41. CLEMASTINE FUMARATE [Concomitant]
     Active Substance: CLEMASTINE FUMARATE
     Indication: Urticaria
     Dosage: 2 MILLIGRAM, QD
     Route: 030
     Dates: start: 20240930, end: 20240930
  42. STREPSILS SOOTHING [Concomitant]
     Indication: Pharyngitis
     Dosage: 1 CAPSULE
     Route: 048
     Dates: start: 20241017, end: 20241022

REACTIONS (4)
  - Diverticulitis [Recovered/Resolved]
  - Peritonitis [Recovered/Resolved]
  - Aspartate aminotransferase increased [Recovered/Resolved]
  - Alanine aminotransferase increased [Not Recovered/Not Resolved]

NARRATIVE: CASE EVENT DATE: 20240319
